FAERS Safety Report 19763474 (Version 2)
Quarter: 2021Q3

REPORT INFORMATION
  Report Type: Spontaneous
  Country: US (occurrence: US)
  Receive Date: 20210830
  Receipt Date: 20210929
  Transmission Date: 20211014
  Serious: No
  Sender: FDA-Public Use
  Company Number: US-ASTRAZENECA-2021A670195

PATIENT
  Age: 72 Year
  Sex: Male

DRUGS (1)
  1. BYDUREON BCISE [Suspect]
     Active Substance: EXENATIDE
     Route: 058
     Dates: start: 202104

REACTIONS (4)
  - Injection site swelling [Unknown]
  - Injection site pain [Recovered/Resolved]
  - Injection site nodule [Unknown]
  - Device defective [Unknown]
